FAERS Safety Report 9258345 (Version 2)
Quarter: 2014Q1

REPORT INFORMATION
  Report Type: Spontaneous
  Country: US (occurrence: None)
  Receive Date: 20121212
  Receipt Date: 20130314
  Transmission Date: 20141002
  Serious: No
  Sender: FDA-Public Use
  Company Number: 1210USA010472

PATIENT
  Age: 41 Year
  Sex: Male

DRUGS (3)
  1. VICTRELIS [Suspect]
     Indication: HEPATITIS C
     Route: 048
  2. REBETOL (RIBAVIRIN) CAPSULE [Suspect]
     Route: 048
  3. PEG-INTRON [Suspect]
     Route: 058

REACTIONS (3)
  - Nausea [None]
  - Vomiting [None]
  - Rash [None]
